FAERS Safety Report 8327536-5 (Version None)
Quarter: 2012Q2

REPORT INFORMATION
  Report Type: 
  Country: None (occurrence: None)
  Receive Date: 20120430
  Receipt Date: 20120420
  Transmission Date: 20120825
  Serious: Yes (Disabling, Other)
  Sender: FDA-Public Use
  Company Number: 2012SP021220

PATIENT
  Age: 56 Year
  Sex: Male
  Weight: 164.6557 kg

DRUGS (2)
  1. SAPHRIS [Suspect]
     Dosage: 10 MG;BID;SL ; 5 MG;QD;SL ; 10 MG;BID;SL
     Route: 060
     Dates: start: 20111011
  2. SAPHRIS [Suspect]
     Dosage: 10 MG;BID;SL ; 5 MG;QD;SL ; 10 MG;BID;SL
     Route: 060
     Dates: end: 20111206

REACTIONS (4)
  - ANXIETY [None]
  - AKATHISIA [None]
  - TREMOR [None]
  - PANIC REACTION [None]
